FAERS Safety Report 4500293-6 (Version None)
Quarter: 2004Q3

REPORT INFORMATION
  Report Type: 
  Country: None (occurrence: None)
  Receive Date: 20040927
  Receipt Date: 20040716
  Transmission Date: 20050211
  Serious: No
  Sender: FDA-Public Use
  Company Number: USA040772830

PATIENT
  Age: 45 Year
  Sex: Female

DRUGS (1)
  1. STRATTERA [Suspect]
     Dates: end: 20030101

REACTIONS (2)
  - CHILLS [None]
  - COLD SWEAT [None]
